FAERS Safety Report 5515092-6 (Version None)
Quarter: 2007Q4

REPORT INFORMATION
  Report Type: 
  Country: None (occurrence: None)
  Receive Date: 20071113
  Receipt Date: 20061227
  Transmission Date: 20080405
  Serious: No
  Sender: FDA-Public Use
  Company Number: A0632619A

PATIENT
  Age: 54 Year
  Sex: Male

DRUGS (3)
  1. COREG [Suspect]
     Dosage: 25MG VARIABLE DOSE
     Route: 048
     Dates: start: 20060901
  2. LISINOPRIL [Concomitant]
  3. COUMADIN [Concomitant]

REACTIONS (1)
  - MYALGIA [None]
